FAERS Safety Report 12672552 (Version 1)
Quarter: 2016Q3

REPORT INFORMATION
  Report Type: Spontaneous
  Country: US (occurrence: US)
  Receive Date: 20160822
  Receipt Date: 20160822
  Transmission Date: 20161109
  Serious: Yes (Other)
  Sender: FDA-Public Use
  Company Number: US-009507513-1608USA009523

PATIENT
  Age: 17 Year
  Sex: Female
  Weight: 113.38 kg

DRUGS (1)
  1. NEXPLANON [Suspect]
     Active Substance: ETONOGESTREL
     Indication: CONTRACEPTION
     Dosage: LEFT ARM IMPLANT, EVERY 3 YEARS
     Route: 059
     Dates: start: 20140814

REACTIONS (7)
  - Back pain [Unknown]
  - Pain in extremity [Unknown]
  - Pregnancy with contraceptive device [Unknown]
  - Unintended pregnancy [Unknown]
  - Menorrhagia [Recovered/Resolved]
  - Abdominal pain upper [Unknown]
  - Dysmenorrhoea [Recovered/Resolved]

NARRATIVE: CASE EVENT DATE: 201603
